FAERS Safety Report 9746456 (Version 2)
Quarter: 2013Q4

REPORT INFORMATION
  Report Type: Report from Study
  Country: FR (occurrence: FR)
  Receive Date: 20131211
  Receipt Date: 20131227
  Transmission Date: 20140711
  Serious: Yes (Hospitalization)
  Sender: FDA-Public Use
  Company Number: FR-BAYER-2013-147370

PATIENT
  Age: 77 Year
  Sex: Male
  Weight: 74 kg

DRUGS (9)
  1. RIOCIGUAT (GUANYLATE CYCLASE STIMULATOR) [Suspect]
     Indication: PULMONARY HYPERTENSION
     Dosage: 1 MG, TID
     Route: 048
     Dates: start: 20131129
  2. ZANIDIP [Concomitant]
     Indication: HYPERTENSION
     Dosage: DAILY DOSE 20 MG
     Route: 048
  3. TRIATEC [Concomitant]
     Indication: HYPERTENSION
     Dosage: DAILY 5 MG
     Route: 048
  4. JANUVIA [Concomitant]
     Indication: DIABETES MELLITUS
     Dosage: DAILY 100 MG
     Route: 048
  5. AMAREL [Concomitant]
     Indication: DIABETES MELLITUS
     Dosage: DAILY 6 MG
     Route: 048
  6. INSULINE NORDISK [Concomitant]
     Indication: DIABETES MELLITUS
     Dosage: GLYCEMIA-DEPENDENT
     Route: 058
     Dates: start: 20131202
  7. TAHOR [Concomitant]
     Indication: HYPERLIPIDAEMIA
     Dosage: DAILY 10 MG
     Route: 048
  8. PREVISCAN [Concomitant]
     Indication: PULMONARY ARTERIAL HYPERTENSION
     Dosage: DAILY 0.5 MG
     Route: 048
     Dates: start: 20000707
  9. CORDARONE [Concomitant]
     Indication: TACHYCARDIA
     Dosage: DAILY 200 MG
     Route: 048
     Dates: start: 20131127

REACTIONS (1)
  - Blood creatinine increased [Recovered/Resolved]
